FAERS Safety Report 8042345-2 (Version None)
Quarter: 2012Q1

REPORT INFORMATION
  Report Type: 
  Country: None (occurrence: None)
  Receive Date: 20120112
  Receipt Date: 20120109
  Transmission Date: 20120608
  Serious: Yes (Death)
  Sender: FDA-Public Use
  Company Number: IT-ELI_LILLY_AND_COMPANY-IT201112005174

PATIENT
  Sex: Male

DRUGS (5)
  1. ALIMTA [Suspect]
     Indication: NON-SMALL CELL LUNG CANCER STAGE IV
     Dosage: 400 MG/M2, UNKNOWN
     Route: 042
     Dates: start: 20111025
  2. FOLIC ACID [Concomitant]
  3. CARBOPLATIN [Concomitant]
     Dosage: 380 MG, UNK
     Route: 042
     Dates: start: 20111025
  4. DEXAMETHASONE [Concomitant]
  5. VITAMIN B-12 [Concomitant]

REACTIONS (1)
  - CARDIAC ARREST [None]
